FAERS Safety Report 6658778-2 (Version None)
Quarter: 2010Q1

REPORT INFORMATION
  Report Type: 
  Country: None (occurrence: None)
  Receive Date: 20100330
  Receipt Date: 20100322
  Transmission Date: 20100710
  Serious: Yes (Other)
  Sender: FDA-Public Use
  Company Number: GXKR2010GB03372

PATIENT
  Sex: Male

DRUGS (8)
  1. BENDROFLUMETHIAZIDE (NGX) [Interacting]
  2. BISOPROLOL (NGX) [Suspect]
  3. DOXAZOSIN MESYLATE (NGX) [Interacting]
  4. RANITIDINE HCL [Interacting]
  5. COLOFAC [Interacting]
     Indication: IRRITABLE BOWEL SYNDROME
  6. EDRONAX [Interacting]
     Indication: DEPRESSION
     Dosage: UNK
     Dates: start: 20100223
  7. DOMPERIDONE MALEATE [Interacting]
  8. NEXIUM [Interacting]

REACTIONS (3)
  - DRUG INTERACTION [None]
  - FATIGUE [None]
  - SEDATION [None]
